FAERS Safety Report 6461931-4 (Version None)
Quarter: 2009Q4

REPORT INFORMATION
  Report Type: 
  Country: None (occurrence: None)
  Receive Date: 20091118
  Receipt Date: 20091111
  Transmission Date: 20100525
  Serious: Yes (Hospitalization)
  Sender: FDA-Public Use
  Company Number: 230444J09USA

PATIENT
  Age: 36 Year
  Sex: Female

DRUGS (7)
  1. REBIF [Suspect]
     Indication: MULTIPLE SCLEROSIS
     Dosage: SEE IMAGE
     Route: 058
     Dates: start: 20090901, end: 20090901
  2. REBIF [Suspect]
     Indication: MULTIPLE SCLEROSIS
     Dosage: SEE IMAGE
     Route: 058
     Dates: start: 20090901, end: 20090914
  3. REBIF [Suspect]
     Indication: MULTIPLE SCLEROSIS
     Dosage: SEE IMAGE
     Route: 058
     Dates: start: 20090101
  4. ADVAIR HFA [Concomitant]
  5. LEXAPRO [Concomitant]
  6. DEPAKOTE [Concomitant]
  7. CLONIDINE [Concomitant]

REACTIONS (5)
  - DROOLING [None]
  - DYSARTHRIA [None]
  - FEELING HOT [None]
  - MULTIPLE SCLEROSIS [None]
  - SENSATION OF PRESSURE [None]
